FAERS Safety Report 9171596 (Version 2)
Quarter: 2013Q2

REPORT INFORMATION
  Report Type: Spontaneous
  Country: FR (occurrence: FR)
  Receive Date: 20130319
  Receipt Date: 20130403
  Transmission Date: 20140414
  Serious: Yes (Life-Threatening, Hospitalization, Other)
  Sender: FDA-Public Use
  Company Number: FR-PFIZER INC-2013085949

PATIENT
  Age: 41 Year
  Sex: Female

DRUGS (2)
  1. ZOLOFT [Suspect]
     Dosage: ONE DAILY (EVENING) DOSAGE FORM
     Route: 048
     Dates: start: 20050512
  2. EFEZIAL [Suspect]
     Indication: CONTRACEPTION
     Dosage: ONE DAILY DOSAGE FORM
     Route: 048

REACTIONS (7)
  - Cerebral venous thrombosis [Recovered/Resolved with Sequelae]
  - Haemorrhagic cerebral infarction [Recovered/Resolved]
  - Lung abscess [Recovered/Resolved]
  - Septic shock [Recovered/Resolved]
  - Retroperitoneal haematoma [Recovering/Resolving]
  - Anaemia [Recovered/Resolved]
  - Gerstmann^s syndrome [Unknown]
